FAERS Safety Report 4897507-X (Version None)
Quarter: 2006Q1

REPORT INFORMATION
  Report Type: 
  Country: None (occurrence: None)
  Receive Date: 20060130
  Receipt Date: 20060130
  Transmission Date: 20060701
  Serious: Yes (Other)
  Sender: FDA-Public Use
  Company Number: None

PATIENT
  Age: 44 Year
  Sex: Female
  Weight: 72.5755 kg

DRUGS (3)
  1. XOLAIR [Suspect]
     Indication: ASTHMA
     Dosage: 112.5 MG0.9 ML Q 2 WKS SUBQ
     Route: 058
     Dates: start: 20051207
  2. XOLAIR [Suspect]
     Indication: ASTHMA
     Dosage: 112.5 MG0.9 ML Q 2 WKS SUBQ
     Route: 058
     Dates: start: 20051222
  3. XOLAIR [Suspect]
     Indication: ASTHMA
     Dosage: 112.5 MG0.9 ML Q 2 WKS SUBQ
     Route: 058
     Dates: start: 20060105

REACTIONS (4)
  - HYPOAESTHESIA [None]
  - INJECTION SITE REACTION [None]
  - PHARYNGEAL OEDEMA [None]
  - SWOLLEN TONGUE [None]
